FAERS Safety Report 9241973 (Version 1)
Quarter: 2013Q2

REPORT INFORMATION
  Report Type: Report from Study
  Country: DE (occurrence: DE)
  Receive Date: 20130419
  Receipt Date: 20130419
  Transmission Date: 20140414
  Serious: Yes (Hospitalization)
  Sender: FDA-Public Use
  Company Number: DE-ROCHE-1092242

PATIENT
  Age: 61 Year
  Sex: Male
  Weight: 67 kg

DRUGS (2)
  1. RITUXIMAB [Suspect]
     Indication: MALIGNANT LYMPHOID NEOPLASM
     Dosage: LAST DOSE PROIR TO SAE WAS ON 14/JUN/2012, 665 MG ABSOLUTE
     Route: 042
     Dates: start: 20120216
  2. BENDAMUSTINE [Suspect]
     Indication: MALIGNANT LYMPHOID NEOPLASM
     Dosage: LAST DOSE PROIR TO SAE WAS ON 15/JUN/2012, 175 MG ABSOLUTE
     Route: 042
     Dates: start: 20120216

REACTIONS (4)
  - Hallucination [Unknown]
  - Abdominal pain upper [Recovering/Resolving]
  - Constipation [Recovering/Resolving]
  - Muscular weakness [Recovering/Resolving]
